FAERS Safety Report 4467974-4 (Version None)
Quarter: 2004Q4

REPORT INFORMATION
  Report Type: 
  Country: None (occurrence: None)
  Receive Date: 20041004
  Receipt Date: 20040924
  Transmission Date: 20050328
  Serious: Yes (Hospitalization, Other)
  Sender: FDA-Public Use
  Company Number: 2004-08-1526

PATIENT
  Age: 32 Year
  Sex: Female

DRUGS (9)
  1. CELESTONE [Suspect]
     Dosage: 0.1% TOP-OPHTHALMIC
     Route: 047
     Dates: start: 20030501
  2. PREDNISOLONE [Suspect]
     Indication: WEGENER'S GRANULOMATOSIS
     Dosage: 50-30 MG ORAL : 50 MG ORAL , 40 MG ORAL , 30 MG ORAL
     Route: 048
     Dates: start: 20030722, end: 20030823
  3. PREDNISOLONE [Suspect]
     Indication: WEGENER'S GRANULOMATOSIS
     Dosage: 50-30 MG ORAL : 50 MG ORAL , 40 MG ORAL , 30 MG ORAL
     Route: 048
     Dates: start: 20030824, end: 20030901
  4. PREDNISOLONE [Suspect]
     Indication: WEGENER'S GRANULOMATOSIS
     Dosage: 50-30 MG ORAL : 50 MG ORAL , 40 MG ORAL , 30 MG ORAL
     Route: 048
     Dates: start: 20030902
  5. ENDOXAN [Concomitant]
  6. BROMFENAC SODIUM OPHTHALMIC SOLUTION EYE [Concomitant]
  7. LOXONIN [Concomitant]
  8. CEFZON [Concomitant]
  9. LEVOFLOXACIN [Concomitant]

REACTIONS (4)
  - DELIRIUM [None]
  - INSOMNIA [None]
  - PSYCHOTIC DISORDER [None]
  - WEGENER'S GRANULOMATOSIS [None]
